FAERS Safety Report 23257727 (Version 2)
Quarter: 2023Q4

REPORT INFORMATION
  Report Type: Spontaneous
  Country: US (occurrence: US)
  Receive Date: 20231204
  Receipt Date: 20231204
  Transmission Date: 20240110
  Serious: No
  Sender: FDA-Public Use
  Company Number: US-OPELLA-2023OHG014645

PATIENT

DRUGS (1)
  1. ICY HOT MEDICATED NO MESS APPLICATOR [Suspect]
     Active Substance: MENTHOL
     Indication: Myalgia
     Dosage: FORMULATION: LIQUID

REACTIONS (2)
  - Skin burning sensation [Unknown]
  - Therapeutic product effect delayed [Unknown]
